FAERS Safety Report 19678281 (Version 1)
Quarter: 2021Q3

REPORT INFORMATION
  Report Type: Spontaneous
  Country: GB (occurrence: GB)
  Receive Date: 20210809
  Receipt Date: 20210809
  Transmission Date: 20211014
  Serious: Yes (Other)
  Sender: FDA-Public Use
  Company Number: GB-PURDUE-USA-2021-0279164

PATIENT

DRUGS (2)
  1. OXYCODONE HYDROCHLORIDE. [Suspect]
     Active Substance: OXYCODONE HYDROCHLORIDE
     Indication: ABDOMINAL PAIN
     Dosage: UNK [MODERATE RELEASE AND FAST ACTION TABLETS]
     Route: 065
     Dates: start: 2006
  2. OXYGEN. [Concomitant]
     Active Substance: OXYGEN

REACTIONS (3)
  - Cerebrovascular accident [Unknown]
  - Feeling abnormal [Unknown]
  - Drug dependence [Recovered/Resolved]

NARRATIVE: CASE EVENT DATE: 2011
